FAERS Safety Report 5988749-0 (Version None)
Quarter: 2008Q4

REPORT INFORMATION
  Report Type: 
  Country: None (occurrence: None)
  Receive Date: 20081210
  Receipt Date: 20081202
  Transmission Date: 20090506
  Serious: Yes (Other)
  Sender: FDA-Public Use
  Company Number: PHHY2008BR30873

PATIENT
  Age: 51 Year
  Sex: Male
  Weight: 84 kg

DRUGS (3)
  1. DIOVAN [Suspect]
     Indication: HYPERTENSION
     Dosage: 160 MG, BID
     Route: 048
  2. ATENOLOL [Concomitant]
     Indication: TACHYCARDIA
     Dosage: 25 MG, QD
     Route: 048
  3. HYDROCHLOROTHIAZIDE [Concomitant]
     Indication: HYPERTENSION
     Dosage: 25 MG, QD
     Route: 048

REACTIONS (7)
  - BLOOD PRESSURE INCREASED [None]
  - DEPRESSION [None]
  - DIZZINESS [None]
  - FATIGUE [None]
  - HEADACHE [None]
  - NERVOUSNESS [None]
  - TREATMENT NONCOMPLIANCE [None]
